FAERS Safety Report 5154687-9 (Version None)
Quarter: 2006Q4

REPORT INFORMATION
  Report Type: 
  Country: None (occurrence: None)
  Receive Date: 20061113
  Receipt Date: 20061101
  Transmission Date: 20070319
  Serious: Yes (Hospitalization)
  Sender: FDA-Public Use
  Company Number: 149407ISR

PATIENT
  Age: 81 Year
  Sex: Female

DRUGS (2)
  1. CITALOPRAM [Suspect]
     Indication: DEPRESSION
     Dosage: 10 MG ORAL; SEE IMAGE
     Route: 048
     Dates: end: 20060929
  2. CITALOPRAM [Suspect]
     Indication: DEPRESSION
     Dosage: 10 MG ORAL; SEE IMAGE
     Route: 048
     Dates: start: 20060815

REACTIONS (3)
  - BLOOD SODIUM DECREASED [None]
  - CORONARY ARTERY DISEASE [None]
  - PULMONARY OEDEMA [None]
